FAERS Safety Report 5140563-4 (Version None)
Quarter: 2006Q4

REPORT INFORMATION
  Report Type: 
  Country: None (occurrence: None)
  Receive Date: 20061025
  Receipt Date: 20061009
  Transmission Date: 20070319
  Serious: Yes (Hospitalization, Disabling)
  Sender: FDA-Public Use
  Company Number: US116239

PATIENT
  Age: 53 Year
  Sex: Female
  Weight: 51 kg

DRUGS (4)
  1. ENBREL [Suspect]
     Indication: ANKYLOSING SPONDYLITIS
     Dosage: 25 MG, 2 IN 1 WEEKS, SC
     Route: 058
     Dates: start: 20041105, end: 20050104
  2. MERCAPTOPURINE [Suspect]
     Dosage: 1 DF, 1 IN 1 DAYS, PO
     Route: 048
     Dates: start: 20041105, end: 20050104
  3. BETAMETHASONE [Concomitant]
  4. CORTICOSTEROIDS [Concomitant]

REACTIONS (7)
  - ANTINUCLEAR ANTIBODY POSITIVE [None]
  - DEAFNESS NEUROSENSORY [None]
  - DEMYELINATION [None]
  - DERMATITIS PSORIASIFORM [None]
  - DISEASE RECURRENCE [None]
  - DRUG INEFFECTIVE [None]
  - NEUROPATHY [None]
